FAERS Safety Report 15344582 (Version 2)
Quarter: 2018Q4

REPORT INFORMATION
  Report Type: Spontaneous
  Country: US (occurrence: US)
  Receive Date: 20180903
  Receipt Date: 20181019
  Transmission Date: 20190204
  Serious: No
  Sender: FDA-Public Use
  Company Number: US-SA-2018SA244722

PATIENT
  Age: 34 Year
  Sex: Male

DRUGS (6)
  1. ONDANSETRON [Concomitant]
     Active Substance: ONDANSETRON
  2. AUBAGIO [Suspect]
     Active Substance: TERIFLUNOMIDE
     Indication: MULTIPLE SCLEROSIS
     Dosage: 1 DF, QD
     Route: 048
     Dates: start: 201806
  3. STELARA [Concomitant]
     Active Substance: USTEKINUMAB
  4. VALACYCLOVIR [VALACICLOVIR] [Concomitant]
  5. GAVILYTE G [Concomitant]
     Active Substance: POLYETHYLENE GLYCOL 3350\POTASSIUM CHLORIDE\SODIUM BICARBONATE\SODIUM CHLORIDE\SODIUM SULFATE ANHYDROUS
  6. TRIAZOLAM. [Concomitant]
     Active Substance: TRIAZOLAM

REACTIONS (4)
  - Depressed mood [Unknown]
  - Decreased interest [Unknown]
  - Depression [Unknown]
  - Influenza like illness [Unknown]

NARRATIVE: CASE EVENT DATE: 201807
